FAERS Safety Report 16884767 (Version 1)
Quarter: 2019Q4

REPORT INFORMATION
  Report Type: Report from Study
  Country: FR (occurrence: FR)
  Receive Date: 20191004
  Receipt Date: 20191004
  Transmission Date: 20200122
  Serious: Yes (Death)
  Sender: FDA-Public Use
  Company Number: FR-PFIZER INC-2019423278

PATIENT

DRUGS (3)
  1. ARACYTINE [Suspect]
     Active Substance: CYTARABINE
     Indication: LYMPHOMA
  2. MELPHALAN. [Suspect]
     Active Substance: MELPHALAN
     Indication: LYMPHOMA
  3. BUSULFAN. [Suspect]
     Active Substance: BUSULFAN
     Indication: LYMPHOMA

REACTIONS (1)
  - Multiple organ dysfunction syndrome [Fatal]
